FAERS Safety Report 15470226 (Version 1)
Quarter: 2018Q4

REPORT INFORMATION
  Report Type: Spontaneous
  Country: AR (occurrence: AR)
  Receive Date: 20181005
  Receipt Date: 20181005
  Transmission Date: 20190205
  Serious: Yes (Hospitalization, Other)
  Sender: FDA-Public Use
  Company Number: AR-009507513-1810ARG001112

PATIENT
  Age: 54 Year
  Sex: Female

DRUGS (3)
  1. KEYTRUDA [Suspect]
     Active Substance: PEMBROLIZUMAB
     Indication: NON-SMALL CELL LUNG CANCER
  2. KEYTRUDA [Suspect]
     Active Substance: PEMBROLIZUMAB
     Indication: MALIGNANT MELANOMA
     Dosage: UNK
     Route: 041
     Dates: end: 20180914
  3. PLATINUM [Concomitant]
     Active Substance: PLATINUM
     Indication: BREAST CANCER METASTATIC
     Dosage: 3 CYCLES

REACTIONS (4)
  - Confusional state [Recovered/Resolved]
  - Encephalitis [Recovered/Resolved]
  - Tonic convulsion [Recovered/Resolved]
  - Lumbar puncture abnormal [Recovered/Resolved]

NARRATIVE: CASE EVENT DATE: 2018
